FAERS Safety Report 9719744 (Version 1)
Quarter: 2013Q4

REPORT INFORMATION
  Report Type: Spontaneous
  Country: US (occurrence: US)
  Receive Date: 20131128
  Receipt Date: 20131128
  Transmission Date: 20140711
  Serious: Yes (Hospitalization)
  Sender: FDA-Public Use
  Company Number: US-ASTRAZENECA-2013SE86278

PATIENT
  Age: 78 Year
  Sex: Male

DRUGS (2)
  1. BRILINTA [Suspect]
     Indication: MYOCARDIAL INFARCTION
     Route: 048
     Dates: start: 20131116, end: 20131118
  2. BRILINTA [Suspect]
     Indication: STENT PLACEMENT
     Route: 048
     Dates: start: 20131116, end: 20131118

REACTIONS (3)
  - Urinary tract infection [Unknown]
  - Urosepsis [Unknown]
  - Dyspnoea [Recovering/Resolving]
